FAERS Safety Report 13990886 (Version 3)
Quarter: 2017Q4

REPORT INFORMATION
  Report Type: Spontaneous
  Country: FR (occurrence: FR)
  Receive Date: 20170920
  Receipt Date: 20171010
  Transmission Date: 20180321
  Serious: Yes (Other)
  Sender: FDA-Public Use
  Company Number: FR-MERCK KGAA-2026953

PATIENT
  Age: 38 Year
  Sex: Male

DRUGS (6)
  1. EUTHYRAL(NOVOTHYRAL)(LEVOTHYROXINE SODIUM, LIOTHYRONINE SODIUM) [Suspect]
     Active Substance: LEVOTHYROXINE SODIUM\LIOTHYRONINE SODIUM
     Route: 048
     Dates: start: 20020901, end: 20170425
  2. EUTHYRAL(NOVOTHYRAL)(LEVOTHYROXINE SODIUM, LIOTHYRONINE SODIUM) [Suspect]
     Active Substance: LEVOTHYROXINE SODIUM\LIOTHYRONINE SODIUM
     Route: 048
     Dates: start: 20170613
  3. LEVOTHYROXINE SODIUM. [Suspect]
     Active Substance: LEVOTHYROXINE SODIUM
     Route: 048
     Dates: start: 20170424, end: 20170612
  4. ATORVASTATIN [Concomitant]
     Active Substance: ATORVASTATIN
  5. NOVOTHYROX [Suspect]
     Active Substance: LEVOTHYROXINE SODIUM
     Indication: AUTOIMMUNE THYROIDITIS
     Route: 048
     Dates: start: 2017, end: 20170425
  6. NOVOTHYROX [Suspect]
     Active Substance: LEVOTHYROXINE SODIUM
     Route: 048
     Dates: start: 20170613

REACTIONS (4)
  - Weight increased [Not Recovered/Not Resolved]
  - Fatigue [Not Recovered/Not Resolved]
  - Insomnia [Not Recovered/Not Resolved]
  - Blood thyroid stimulating hormone [Not Recovered/Not Resolved]

NARRATIVE: CASE EVENT DATE: 201704
